FAERS Safety Report 4369752-3 (Version None)
Quarter: 2004Q2

REPORT INFORMATION
  Report Type: 
  Country: None (occurrence: None)
  Receive Date: 20040528
  Receipt Date: 20040514
  Transmission Date: 20050107
  Serious: Yes (Hospitalization)
  Sender: FDA-Public Use
  Company Number: US-2004-025642

PATIENT
  Sex: Female

DRUGS (20)
  1. BETASERON [Suspect]
     Indication: MULTIPLE SCLEROSIS
     Dosage: 500 UG, EVERY 2D, SUBCUTANEOUS
     Route: 058
  2. MULTIVITAMIN ^LAPPE^ (VITAMINS NOS) [Concomitant]
  3. NECON [Concomitant]
  4. AMANTADINE HCL [Concomitant]
  5. OXYBUTYNIN [Concomitant]
  6. LISINOPRIL (LISONOPRIL) [Concomitant]
  7. PREVACID [Concomitant]
  8. MOTRIN [Concomitant]
  9. TYLENOL PMM (DIPHENHYDRAMINE) [Concomitant]
  10. ADVIL COLD + SINUS (PSEUDOEPHEDRINE HYDROCHLORIDE) [Concomitant]
  11. YOHIMBINE (YOHIMBINE) [Concomitant]
  12. ALEVE/00256202(NAPROXEN SODIUM) [Concomitant]
  13. ALLEGRA-D  /0136/(FEXOFENADINE HYDROCHLORIDE, PSEUDOPHEDRINE HYDROCHLO [Concomitant]
  14. MIDOL (ACETYLSALICYLIC ACID, PHENACETIN, CINNAMEDRINE) [Concomitant]
  15. SINGULAIR ^MERCK^(MONTELUKAST SODIUM) [Concomitant]
  16. BACLOFEN [Concomitant]
  17. REGLAN /USA/(METOCLOPRAMIDE HYDROCHLORIDE) [Concomitant]
  18. NEURONTIN [Concomitant]
  19. TYLENOL W/ CODEINE NO. 3 [Concomitant]
  20. PROZAC (FLUOXETINE HYDROCHLORIED) [Concomitant]

REACTIONS (2)
  - CARDIOMEGALY [None]
  - DYSPNOEA EXACERBATED [None]
